FAERS Safety Report 4524224-8 (Version None)
Quarter: 2004Q4

REPORT INFORMATION
  Report Type: 
  Country: None (occurrence: None)
  Receive Date: 20041209
  Receipt Date: 20041130
  Transmission Date: 20050328
  Serious: Yes (Hospitalization)
  Sender: FDA-Public Use
  Company Number: 2004-11-0884

PATIENT
  Age: 63 Year
  Sex: Female
  Weight: 45 kg

DRUGS (8)
  1. RINDERON TABLETS [Suspect]
     Indication: ANAPLASTIC ASTROCYTOMA
     Dosage: SEE IMAGE
     Route: 048
     Dates: end: 20041104
  2. RINDERON TABLETS [Suspect]
     Indication: ANAPLASTIC ASTROCYTOMA
     Dosage: SEE IMAGE
     Route: 048
     Dates: start: 20041104
  3. TEMOZOLOMIDE CAPSULES [Suspect]
     Indication: ANAPLASTIC ASTROCYTOMA
     Dosage: 195 MG QD ORAL
     Route: 048
     Dates: start: 20040929, end: 20041003
  4. DEPAKENE TABLETS [Concomitant]
  5. AMLODIPINE BESILATE TABLETS [Concomitant]
  6. GASTER TABLETS [Concomitant]
  7. SELBEX CAPSULES [Concomitant]
  8. PURSENNID TABLETS [Concomitant]

REACTIONS (6)
  - ASPARTATE AMINOTRANSFERASE INCREASED [None]
  - BLOOD ALBUMIN DECREASED [None]
  - BUTTOCK PAIN [None]
  - HEPATIC FUNCTION ABNORMAL [None]
  - HERPES ZOSTER [None]
  - IMMUNOSUPPRESSION [None]
